FAERS Safety Report 9194489 (Version 1)
Quarter: 2013Q1

REPORT INFORMATION
  Report Type: Spontaneous
  Country: US (occurrence: US)
  Receive Date: 20130327
  Receipt Date: 20130327
  Transmission Date: 20140127
  Serious: No
  Sender: FDA-Public Use
  Company Number: US-ALLERGAN-1206435US

PATIENT
  Age: 62 Year
  Sex: Female

DRUGS (2)
  1. LATISSE 0.03% [Suspect]
     Indication: GROWTH OF EYELASHES
     Dosage: 2 GTT, UNK
     Route: 047
     Dates: start: 20120504, end: 20120504
  2. MEDS FOR DRY EYES [Concomitant]
     Indication: DRY EYE

REACTIONS (2)
  - Drug administered at inappropriate site [Unknown]
  - Ocular hyperaemia [Unknown]
